FAERS Safety Report 4304547-8 (Version None)
Quarter: 2004Q1

REPORT INFORMATION
  Report Type: 
  Country: None (occurrence: None)
  Receive Date: 20040225
  Receipt Date: 20040225
  Transmission Date: 20041129
  Serious: Yes (Hospitalization)
  Sender: FDA-Public Use
  Company Number: None

PATIENT
  Sex: Female

DRUGS (11)
  1. INVANZ [Suspect]
     Indication: ABSCESS
     Dosage: 1 GM IV QD
     Dates: start: 20040214, end: 20040221
  2. REMERON [Concomitant]
  3. METOPROLOL [Concomitant]
  4. DILTIAZEM [Concomitant]
  5. FESO4 [Concomitant]
  6. K-DUR 10 [Concomitant]
  7. FUROSEMIDE [Concomitant]
  8. ADVAIR DISKUS 100/50 [Concomitant]
  9. PROTONIX [Concomitant]
  10. SPIRONOLACTONE [Concomitant]
  11. COUMADIN [Concomitant]

REACTIONS (1)
  - CONVULSION [None]
